FAERS Safety Report 20461605 (Version 1)
Quarter: 2022Q1

REPORT INFORMATION
  Report Type: Spontaneous
  Country: US (occurrence: US)
  Receive Date: 20220211
  Receipt Date: 20220211
  Transmission Date: 20220424
  Serious: No
  Sender: FDA-Public Use
  Company Number: US-LUPIN PHARMACEUTICALS INC.-2022-01762

PATIENT
  Age: 80 Year
  Sex: Female

DRUGS (5)
  1. QUETIAPINE [Suspect]
     Active Substance: QUETIAPINE
     Indication: Frontotemporal dementia
     Dosage: RECEIVED 75 MG AT 8 AM AND 50 MG AT 5 PM (INSTEAD OF 50 MG AT 8 AM AND 50 MG AT 5 PM) FOR FIVE DAYS
     Route: 065
  2. QUETIAPINE [Suspect]
     Active Substance: QUETIAPINE
     Dosage: ON DAY 6 SHE RECEIVED 75 MG OF QUETIAPINE IN THE MORNING AND THEN NONE IN THE EVENING SHIFT
     Route: 065
  3. QUETIAPINE [Suspect]
     Active Substance: QUETIAPINE
     Dosage: ON DAY 7, SHE RECEIVED 75MG IN THE MORNING AND 50 MG IN THE EVENING.
     Route: 065
  4. QUETIAPINE [Suspect]
     Active Substance: QUETIAPINE
     Dosage: ON DAY 8, THE RESIDENT RECEIVED 50 MG IN THE MORNING AND 25 MG IN THE EVENING (INSTEAD OF 25 MG IN T
     Route: 065
  5. HALOPERIDOL [Concomitant]
     Active Substance: HALOPERIDOL
     Indication: Frontotemporal dementia
     Dosage: 0.5 MG, BID
     Route: 065

REACTIONS (1)
  - Incorrect dose administered [Unknown]
